FAERS Safety Report 4503524-1 (Version None)
Quarter: 2004Q4

REPORT INFORMATION
  Report Type: 
  Country: None (occurrence: None)
  Receive Date: 20041115
  Receipt Date: 20041008
  Transmission Date: 20050328
  Serious: Yes (Hospitalization)
  Sender: FDA-Public Use
  Company Number: STA-AE-04-MTX-473

PATIENT
  Age: 83 Year
  Sex: Male

DRUGS (5)
  1. METHOTREXATE [Suspect]
     Indication: ECZEMA
     Dosage: 10 MG 1X PER 1 WK
  2. METHOTREXATE [Suspect]
     Dosage: 12.5 MG 1X PER 1 WK
  3. UNSPECIFIED ASTHMA MEDICATION (UNSPECIFIED ASTHMA MEDICATION) [Concomitant]
  4. PREDNISOLONE [Concomitant]
  5. BECLOMETHASONE DIPROPIONATE (BECLOMETASONE DIPROPIONATE) [Concomitant]

REACTIONS (4)
  - MYOCARDIAL INFARCTION [None]
  - THERAPY NON-RESPONDER [None]
  - TREATMENT NONCOMPLIANCE [None]
  - TUBERCULOSIS [None]
